FAERS Safety Report 19097365 (Version 1)
Quarter: 2021Q2

REPORT INFORMATION
  Report Type: Spontaneous
  Country: US (occurrence: US)
  Receive Date: 20210406
  Receipt Date: 20210406
  Transmission Date: 20210717
  Serious: No
  Sender: FDA-Public Use
  Company Number: None

PATIENT
  Age: 59 Year
  Sex: Female

DRUGS (2)
  1. AMBRISENTAN [Suspect]
     Active Substance: AMBRISENTAN
     Indication: PULMONARY ARTERIAL HYPERTENSION
     Route: 048
     Dates: start: 20201023, end: 20210317
  2. AMBRISENTAN [Suspect]
     Active Substance: AMBRISENTAN
     Indication: HERITABLE PULMONARY ARTERIAL HYPERTENSION
     Route: 048
     Dates: start: 20201023, end: 20210317

REACTIONS (4)
  - Pulmonary veno-occlusive disease [None]
  - Fluid overload [None]
  - Disease progression [None]
  - Interstitial lung disease [None]

NARRATIVE: CASE EVENT DATE: 20210317
